FAERS Safety Report 7037267-X (Version None)
Quarter: 2010Q4

REPORT INFORMATION
  Report Type: 
  Country: None (occurrence: None)
  Receive Date: 20101011
  Receipt Date: 20100928
  Transmission Date: 20110411
  Serious: Yes (Hospitalization)
  Sender: FDA-Public Use
  Company Number: US-ELI_LILLY_AND_COMPANY-US201008007716

PATIENT
  Age: 70 Year
  Sex: Female

DRUGS (1)
  1. FORTEO [Suspect]
     Indication: OSTEOPOROSIS
     Dosage: 600 UG, DAILY (1/D)
     Route: 058
     Dates: start: 20090626

REACTIONS (5)
  - FALL [None]
  - HIP FRACTURE [None]
  - INTENTIONAL OVERDOSE [None]
  - VITAMIN D DEFICIENCY [None]
  - WRIST FRACTURE [None]
